FAERS Safety Report 10400041 (Version 1)
Quarter: 2014Q3

REPORT INFORMATION
  Report Type: Spontaneous
  Country: US (occurrence: US)
  Receive Date: 20140821
  Receipt Date: 20140821
  Transmission Date: 20150326
  Serious: Yes (Other)
  Sender: FDA-Public Use
  Company Number: PHHY2014US102015

PATIENT
  Age: 46 Year
  Sex: Male

DRUGS (6)
  1. ADALIMUMAB [Suspect]
     Active Substance: ADALIMUMAB
     Indication: CROHN^S DISEASE
  2. INFLIXIMAB [Suspect]
     Active Substance: INFLIXIMAB
     Indication: CROHN^S DISEASE
  3. METHOTREXATE [Suspect]
     Active Substance: METHOTREXATE
     Indication: CROHN^S DISEASE
  4. MERCAPTOPURINE. [Suspect]
     Active Substance: MERCAPTOPURINE
     Indication: CROHN^S DISEASE
  5. SULFASALAZINE. [Suspect]
     Active Substance: SULFASALAZINE
     Indication: CROHN^S DISEASE
  6. PREDNISONE. [Suspect]
     Active Substance: PREDNISONE

REACTIONS (7)
  - Diarrhoea [Recovered/Resolved]
  - Oral disorder [Not Recovered/Not Resolved]
  - Abdominal pain [Recovered/Resolved]
  - Peripheral T-cell lymphoma unspecified [Recovered/Resolved]
  - Colitis [Not Recovered/Not Resolved]
  - Abdominal lymphadenopathy [Recovered/Resolved]
  - Lymphoma [Recovered/Resolved]
